APPROVED DRUG PRODUCT: AMPICILLIN SODIUM
Active Ingredient: AMPICILLIN SODIUM
Strength: EQ 250MG BASE/VIAL
Dosage Form/Route: INJECTABLE;INJECTION
Application: A062692 | Product #002
Applicant: HIKMA PHARMACEUTICALS USA INC
Approved: Jun 24, 1986 | RLD: No | RS: No | Type: DISCN